FAERS Safety Report 6825038-6 (Version None)
Quarter: 2010Q3

REPORT INFORMATION
  Report Type: 
  Country: None (occurrence: None)
  Receive Date: 20100708
  Receipt Date: 20061212
  Transmission Date: 20110219
  Serious: No
  Sender: FDA-Public Use
  Company Number: US-PFIZER INC-2006154425

PATIENT
  Sex: Female
  Weight: 81.65 kg

DRUGS (6)
  1. CHANTIX [Suspect]
     Indication: SMOKING CESSATION THERAPY
     Route: 048
     Dates: start: 20061202
  2. LOPRESSOR [Concomitant]
     Indication: HYPERTENSION
  3. ANALGESICS [Concomitant]
     Indication: KNEE ARTHROPLASTY
  4. XANAX [Concomitant]
  5. CYMBALTA [Concomitant]
  6. ALLEGRA [Concomitant]

REACTIONS (1)
  - DRUG INEFFECTIVE [None]
